FAERS Safety Report 8595249-0 (Version None)
Quarter: 2012Q3

REPORT INFORMATION
  Report Type: 
  Country: None (occurrence: None)
  Receive Date: 20120815
  Receipt Date: 20120223
  Transmission Date: 20120928
  Serious: Yes (Hospitalization, Other)
  Sender: FDA-Public Use
  Company Number: JP-009507513-1208JPN005166

PATIENT

DRUGS (15)
  1. REBETOL [Suspect]
     Indication: HEPATITIS C
     Route: 048
     Dates: start: 20120111, end: 20120131
  2. GASTROM [Concomitant]
     Indication: GASTRITIS
     Route: 048
  3. LASIX [Concomitant]
     Indication: OEDEMA
     Route: 048
  4. PEG-INTRON [Suspect]
     Indication: HEPATITIS C
     Dosage: 1.5MCG/KG/WEEK
     Route: 058
     Dates: start: 20120111, end: 20120620
  5. REBETOL [Suspect]
     Route: 048
     Dates: start: 20120215, end: 20120508
  6. REBETOL [Suspect]
     Route: 048
     Dates: start: 20120516, end: 20120626
  7. TELAVIC [Suspect]
     Indication: HEPATITIS C
     Route: 048
     Dates: start: 20120111
  8. OMEPRAZOLE [Concomitant]
     Indication: GASTROOESOPHAGEAL REFLUX DISEASE
     Route: 048
  9. REBETOL [Suspect]
     Route: 048
     Dates: start: 20120509
  10. TELAVIC [Suspect]
     Route: 048
     Dates: start: 20120215, end: 20120403
  11. CELEBREX [Concomitant]
     Indication: BACK PAIN
     Route: 048
  12. MIGLITOL [Concomitant]
     Indication: DIABETES MELLITUS
     Route: 048
  13. MAGMITT [Concomitant]
     Indication: CONSTIPATION
     Route: 048
  14. REBETOL [Suspect]
     Route: 048
     Dates: start: 20120201, end: 20120214
  15. [THERAPY UNSPECIFIED] [Concomitant]
     Indication: ASTHENIA
     Route: 048

REACTIONS (2)
  - ANAEMIA [None]
  - PROSTATITIS [None]
